FAERS Safety Report 20087574 (Version 1)
Quarter: 2021Q4

REPORT INFORMATION
  Report Type: Spontaneous
  Country: FR (occurrence: FR)
  Receive Date: 20211118
  Receipt Date: 20211118
  Transmission Date: 20220303
  Serious: Yes (Hospitalization, Other)
  Sender: FDA-Public Use
  Company Number: None

PATIENT
  Age: 43 Year
  Sex: Female

DRUGS (1)
  1. XANAX [Suspect]
     Active Substance: ALPRAZOLAM
     Dosage: 2 DF AT THE BEGINNING - UP TO 8 DF AT REPORT TIME
     Route: 048
     Dates: start: 1998

REACTIONS (5)
  - Intentional product misuse [Recovering/Resolving]
  - Drug dependence [Recovering/Resolving]
  - Drug dependence [Recovered/Resolved]
  - Drug withdrawal convulsions [Unknown]
  - Perinatal depression [Unknown]

NARRATIVE: CASE EVENT DATE: 19980101
